FAERS Safety Report 7277116-8 (Version None)
Quarter: 2011Q1

REPORT INFORMATION
  Report Type: 
  Country: None (occurrence: None)
  Receive Date: 20110207
  Receipt Date: 20110119
  Transmission Date: 20110831
  Serious: Yes (Other)
  Sender: FDA-Public Use
  Company Number: GB-AMGEN-GBRCT2011002469

PATIENT
  Age: 41 Year
  Sex: Female
  Weight: 49 kg

DRUGS (4)
  1. ETANERCEPT [Suspect]
     Indication: RHEUMATOID ARTHRITIS
     Dosage: UNK
     Dates: start: 20031215
  2. AMITRIPTYLINE HCL [Suspect]
     Dosage: 10 MG, X 7
  3. METHOTREXATE [Concomitant]
     Dosage: UNK
     Dates: start: 20071120
  4. CITALOPRAM [Suspect]
     Dosage: 20 MG, X 10

REACTIONS (2)
  - OVERDOSE [None]
  - SUICIDE ATTEMPT [None]
